FAERS Safety Report 4770973-6 (Version None)
Quarter: 2005Q3

REPORT INFORMATION
  Report Type: 
  Country: None (occurrence: None)
  Receive Date: 20050914
  Receipt Date: 20050826
  Transmission Date: 20060218
  Serious: Yes (Hospitalization)
  Sender: FDA-Public Use
  Company Number: FR_050807024

PATIENT
  Age: 54 Year
  Sex: Female

DRUGS (5)
  1. FORTEO [Suspect]
     Indication: OSTEOPOROSIS
     Dosage: 20 UG DAY
     Dates: start: 20050402
  2. MORPHINE [Concomitant]
  3. NEURONTIN [Concomitant]
  4. MYOLASTAN (TETRAZEPAM) [Concomitant]
  5. OXAZEPAM [Concomitant]

REACTIONS (1)
  - BACK PAIN [None]
